FAERS Safety Report 6279226-0 (Version None)
Quarter: 2009Q3

REPORT INFORMATION
  Report Type: 
  Country: None (occurrence: None)
  Receive Date: 20090723
  Receipt Date: 20080820
  Transmission Date: 20100115
  Serious: Yes (Other)
  Sender: FDA-Public Use
  Company Number: US-AMGEN-KDL303342

PATIENT
  Sex: Male
  Weight: 49.9 kg

DRUGS (2)
  1. PROCRIT [Suspect]
     Indication: ANAEMIA
  2. AMLODIPINE [Concomitant]

REACTIONS (6)
  - DIZZINESS [None]
  - OEDEMA PERIPHERAL [None]
  - PYREXIA [None]
  - SPEECH DISORDER [None]
  - THROMBOSIS [None]
  - VISUAL IMPAIRMENT [None]
